FAERS Safety Report 7912740-8 (Version None)
Quarter: 2011Q4

REPORT INFORMATION
  Report Type: 
  Country: None (occurrence: None)
  Receive Date: 20111114
  Receipt Date: 20111108
  Transmission Date: 20120403
  Serious: Yes (Other)
  Sender: FDA-Public Use
  Company Number: US-PFIZER INC-2011106915

PATIENT
  Sex: Female

DRUGS (8)
  1. ZOLOFT [Suspect]
     Indication: DEPRESSION
     Dosage: 50 MG DAILY
     Route: 048
  2. LYRICA [Suspect]
     Indication: FIBROMYALGIA
     Dosage: 50 MG, 3X/DAY
     Dates: start: 20110517
  3. LYRICA [Suspect]
     Indication: MULTIPLE SCLEROSIS
  4. LYRICA [Suspect]
     Indication: DEPRESSION
  5. COPAXONE [Suspect]
  6. ZOLOFT [Suspect]
     Indication: FIBROMYALGIA
  7. ZOLOFT [Suspect]
     Indication: MULTIPLE SCLEROSIS
  8. AMITRIPTYLINE HCL [Suspect]

REACTIONS (2)
  - PAIN [None]
  - DEPRESSION [None]
